FAERS Safety Report 5901760-0 (Version None)
Quarter: 2008Q3

REPORT INFORMATION
  Report Type: 
  Country: None (occurrence: None)
  Receive Date: 20080929
  Receipt Date: 20080205
  Transmission Date: 20090109
  Serious: Yes (Hospitalization)
  Sender: FDA-Public Use
  Company Number: JP-BRISTOL-MYERS SQUIBB COMPANY-13911847

PATIENT
  Age: 59 Year
  Sex: Male

DRUGS (11)
  1. MITOMYCIN [Suspect]
     Indication: BLADDER CANCER
     Route: 040
     Dates: start: 20060517, end: 20061116
  2. CALSAN [Concomitant]
     Route: 048
     Dates: start: 20060101
  3. NORVASC [Concomitant]
     Route: 048
     Dates: start: 20060101
  4. LASIX [Concomitant]
     Route: 048
     Dates: start: 20060101
  5. ONON [Concomitant]
     Route: 048
     Dates: start: 20060101
  6. TOWARAT L [Concomitant]
     Route: 048
     Dates: start: 20060101
  7. ODRIK [Concomitant]
     Route: 048
     Dates: start: 20060101
  8. ALPHACALCIDOL [Concomitant]
     Route: 048
     Dates: start: 20060101
  9. BLOPRESS [Concomitant]
     Route: 048
     Dates: start: 20060101
  10. FLUTIDE [Concomitant]
     Route: 055
     Dates: start: 20060101
  11. SEREVENT [Concomitant]
     Route: 055
     Dates: start: 20060101

REACTIONS (1)
  - URINARY BLADDER HAEMORRHAGE [None]
